FAERS Safety Report 7363731-X (Version None)
Quarter: 2011Q1

REPORT INFORMATION
  Report Type: 
  Country: None (occurrence: None)
  Receive Date: 20110321
  Receipt Date: 20110307
  Transmission Date: 20110831
  Serious: Yes (Other)
  Sender: FDA-Public Use
  Company Number: US-JNJFOC-20110305954

PATIENT
  Sex: Female

DRUGS (19)
  1. DURAGESIC-50 [Suspect]
     Indication: BACK PAIN
     Route: 062
  2. FLEXERIL [Suspect]
     Indication: RESTLESS LEGS SYNDROME
     Dosage: EACH EVENING
     Route: 065
  3. CLONIDINE [Suspect]
     Indication: HOT FLUSH
     Route: 065
  4. WELLBUTRIN XL [Suspect]
     Indication: DEPRESSION
     Dosage: EACH MORNING
     Route: 065
  5. MULTIPLE VITAMIN [Suspect]
     Indication: GENERAL PHYSICAL CONDITION
     Dosage: 1 TABLET, EACH MORNING
     Route: 065
  6. SYNTHROID [Suspect]
     Indication: HYPOTHYROIDISM
     Dosage: EACH MORNING
     Route: 065
  7. HYDROCHLOROTHIAZIDE [Suspect]
     Indication: OEDEMA PERIPHERAL
     Dosage: EACH MORNING
     Route: 065
  8. LYRICA [Suspect]
     Indication: NEURALGIA
     Dosage: MORNING AND EVENING
     Route: 065
  9. MOBIC [Suspect]
     Indication: FIBROMYALGIA
     Dosage: AS NEEDED
     Route: 065
  10. LOMOTIL [Suspect]
     Indication: COLITIS
     Dosage: 0.025 MG/2.5 MG AS NEEDED
     Route: 065
  11. LIPITOR [Suspect]
     Indication: HYPERCHOLESTEROLAEMIA
     Dosage: EACH EVENING
     Route: 065
  12. CLONIDINE [Suspect]
     Indication: NIGHT SWEATS
     Route: 065
  13. KLONOPIN [Suspect]
     Indication: RESTLESS LEGS SYNDROME
     Dosage: EACH EVENING
     Route: 065
  14. CALCIUM CITRATE + VITAMIN D [Suspect]
     Indication: OSTEOPOROSIS
     Route: 065
  15. ACIPHEX [Suspect]
     Indication: GASTROOESOPHAGEAL REFLUX DISEASE
     Dosage: EACH MORNING
     Route: 065
  16. CYMBALTA [Suspect]
     Indication: DEPRESSION
     Dosage: EACH MORNING
     Route: 065
  17. CYMBALTA [Suspect]
     Indication: NEURALGIA
     Dosage: EACH MORNING
     Route: 065
  18. NOLVADEX [Suspect]
     Indication: BREAST CANCER
     Dosage: EACH MORNING
     Route: 065
  19. DILAUDID [Suspect]
     Indication: BACK PAIN
     Dosage: AS NEEDED
     Route: 065

REACTIONS (2)
  - ORTHOSTATIC HYPOTENSION [None]
  - FALL [None]
